FAERS Safety Report 18027048 (Version 2)
Quarter: 2020Q3

REPORT INFORMATION
  Report Type: Report from Study
  Country: BR (occurrence: BR)
  Receive Date: 20200715
  Receipt Date: 20200723
  Transmission Date: 20201103
  Serious: Yes (Other)
  Sender: FDA-Public Use
  Company Number: NVSC2020BR198461

PATIENT
  Age: 34 Year
  Sex: Female

DRUGS (5)
  1. LORATADINE. [Concomitant]
     Active Substance: LORATADINE
     Indication: ANTIALLERGIC THERAPY
     Dosage: 265 MG, QD
     Route: 065
  2. COSENTYX [Suspect]
     Active Substance: SECUKINUMAB
     Dosage: 2 DF, QMO (2 AMPOULES OF 150 MG)
     Route: 058
     Dates: start: 202006
  3. COSENTYX [Suspect]
     Active Substance: SECUKINUMAB
     Indication: PSORIATIC ARTHROPATHY
     Dosage: 2 DF, QMO (2 AMPOULES OF 150 MG)
     Route: 058
     Dates: start: 20180904
  4. HYDROXYZINE [Concomitant]
     Active Substance: HYDROXYZINE HYDROCHLORIDE
     Indication: ANTIALLERGIC THERAPY
     Dosage: 1 DF, BID
     Route: 048
  5. PREDNISONE. [Concomitant]
     Active Substance: PREDNISONE
     Indication: ANTIINFLAMMATORY THERAPY
     Dosage: 1 DF, QD
     Route: 048

REACTIONS (11)
  - Feeling abnormal [Recovered/Resolved]
  - Dandruff [Recovered/Resolved]
  - Therapeutic response shortened [Unknown]
  - Drug dependence [Not Recovered/Not Resolved]
  - Influenza [Recovered/Resolved]
  - Hypersensitivity [Recovered/Resolved]
  - Pain [Recovered/Resolved]
  - Arthralgia [Not Recovered/Not Resolved]
  - Pain in extremity [Not Recovered/Not Resolved]
  - Psoriasis [Not Recovered/Not Resolved]
  - Product dose omission issue [Unknown]

NARRATIVE: CASE EVENT DATE: 20200701
